FAERS Safety Report 22194621 (Version 1)
Quarter: 2023Q2

REPORT INFORMATION
  Report Type: Spontaneous
  Country: BR (occurrence: BR)
  Receive Date: 20230411
  Receipt Date: 20230411
  Transmission Date: 20230721
  Serious: Yes (Hospitalization, Other)
  Sender: FDA-Public Use
  Company Number: BR-BoehringerIngelheim-2023-BI-229466

PATIENT
  Age: 69 Year
  Sex: Male
  Weight: 96 kg

DRUGS (4)
  1. FENOTEROL HYDROBROMIDE\IPRATROPIUM BROMIDE [Suspect]
     Active Substance: FENOTEROL HYDROBROMIDE\IPRATROPIUM BROMIDE
     Indication: Asthma
     Dosage: 5 TO 6 TIMES A DAY, TWO PUFFS AT A TIME.
     Route: 055
  2. FENOTEROL HYDROBROMIDE\IPRATROPIUM BROMIDE [Suspect]
     Active Substance: FENOTEROL HYDROBROMIDE\IPRATROPIUM BROMIDE
     Indication: Bronchitis
  3. ATROVENT [Suspect]
     Active Substance: IPRATROPIUM BROMIDE
     Indication: Product used for unknown indication
     Dosage: SINGLE USE, MADE USE OF TWO PUFFS.
     Route: 055
  4. Alenia [Concomitant]
     Indication: Dyspnoea
     Dosage: 1 TIME A DAY, AT BEDTIME.
     Route: 055

REACTIONS (6)
  - Cardio-respiratory arrest [Unknown]
  - Loss of consciousness [Unknown]
  - Dyspnoea exertional [Not Recovered/Not Resolved]
  - Fatigue [Not Recovered/Not Resolved]
  - Extra dose administered [Unknown]
  - Therapeutic product effect variable [Unknown]
